FAERS Safety Report 9770951 (Version 1)
Quarter: 2013Q4

REPORT INFORMATION
  Report Type: Spontaneous
  Country: US (occurrence: US)
  Receive Date: 20131218
  Receipt Date: 20131218
  Transmission Date: 20140711
  Serious: Yes (Other)
  Sender: FDA-Public Use
  Company Number: US-PFIZER INC-2013358508

PATIENT
  Age: 59 Year
  Sex: Male

DRUGS (2)
  1. SOMAVERT [Suspect]
     Indication: ACROMEGALY
     Dosage: UNK
     Dates: start: 200311
  2. SOMAVERT [Suspect]
     Indication: GIGANTISM

REACTIONS (2)
  - Nervous system disorder [Unknown]
  - Amnesia [Unknown]
